FAERS Safety Report 18417339 (Version 2)
Quarter: 2021Q2

REPORT INFORMATION
  Report Type: Spontaneous
  Country: US (occurrence: US)
  Receive Date: 20201022
  Receipt Date: 20210423
  Transmission Date: 20210717
  Serious: No
  Sender: FDA-Public Use
  Company Number: 2020SGN02652

PATIENT
  Sex: Male

DRUGS (4)
  1. TUKYSA [Suspect]
     Active Substance: TUCATINIB
     Indication: METASTASES TO LIVER
  2. TUKYSA [Suspect]
     Active Substance: TUCATINIB
     Indication: CHOLANGIOCARCINOMA
  3. TUKYSA [Suspect]
     Active Substance: TUCATINIB
     Indication: COLON CANCER
     Dosage: UNK, BID
  4. XELODA [Concomitant]
     Active Substance: CAPECITABINE

REACTIONS (8)
  - Tumour marker abnormal [Unknown]
  - Blood cholesterol decreased [Unknown]
  - Brain oedema [Unknown]
  - Disease progression [Unknown]
  - Off label use [Unknown]
  - Tumour marker increased [Unknown]
  - Drug ineffective [Unknown]
  - Dry skin [Unknown]
